FAERS Safety Report 6945171-8 (Version None)
Quarter: 2010Q3

REPORT INFORMATION
  Report Type: 
  Country: None (occurrence: None)
  Receive Date: 20100827
  Receipt Date: 20100507
  Transmission Date: 20110219
  Serious: No
  Sender: FDA-Public Use
  Company Number: US-KINGPHARMUSA00001-K201000585

PATIENT
  Age: 83 Year
  Sex: Female
  Weight: 58.957 kg

DRUGS (4)
  1. FLECTOR [Suspect]
     Indication: STASIS DERMATITIS
     Dosage: 1 PATCH, EVERY 12 HOURS
     Route: 061
     Dates: start: 20100503, end: 20100505
  2. FLECTOR [Suspect]
     Indication: ARTHRALGIA
  3. COZAAR [Concomitant]
     Indication: HYPERTENSION
     Dosage: UNK
  4. PRAVASTATIN [Concomitant]
     Indication: BLOOD CHOLESTEROL INCREASED
     Dosage: UNK

REACTIONS (1)
  - APPLICATION SITE PAIN [None]
